FAERS Safety Report 8160497 (Version 3)
Quarter: 2013Q1

REPORT INFORMATION
  Report Type: Spontaneous
  Country: MX (occurrence: MX)
  Receive Date: 20110928
  Receipt Date: 20130328
  Transmission Date: 20140127
  Serious: Yes (Death)
  Sender: FDA-Public Use
  Company Number: PHHY2011MX85457

PATIENT
  Age: 76 Year
  Sex: Female

DRUGS (1)
  1. EXFORGE [Suspect]
     Indication: HYPERTENSION
     Dosage: 2 DF EVERY DAY, (160 MG VALS AND 5 MG AMLO)
     Route: 048
     Dates: start: 201108

REACTIONS (2)
  - Cardiac arrest [Fatal]
  - Cerebrovascular accident [Fatal]
